FAERS Safety Report 18374362 (Version 1)
Quarter: 2020Q4

REPORT INFORMATION
  Report Type: Spontaneous
  Country: GB (occurrence: GB)
  Receive Date: 20201013
  Receipt Date: 20201013
  Transmission Date: 20210114
  Serious: Yes (Other)
  Sender: FDA-Public Use
  Company Number: GB-NOVAST LABORATORIES LTD.-2020NOV000313

PATIENT

DRUGS (1)
  1. INDOMETHACIN. [Suspect]
     Active Substance: INDOMETHACIN
     Indication: ARTERIAL PERFORATION
     Dosage: 100 MILLIGRAM, TID
     Route: 064

REACTIONS (3)
  - Oligohydramnios [Recovered/Resolved]
  - Product use in unapproved indication [Unknown]
  - Foetal exposure during pregnancy [Unknown]
